FAERS Safety Report 5039326-X (Version None)
Quarter: 2006Q2

REPORT INFORMATION
  Report Type: 
  Country: None (occurrence: None)
  Receive Date: 20060623
  Receipt Date: 20060605
  Transmission Date: 20061013
  Serious: Yes (Other)
  Sender: FDA-Public Use
  Company Number: US200606001166

PATIENT
  Age: 52 Year
  Sex: Female

DRUGS (1)
  1. SOMATROPIN(SOMATROPIN) CARTRIDGE [Suspect]

REACTIONS (3)
  - BACK DISORDER [None]
  - PAIN [None]
  - PHARMACEUTICAL PRODUCT COMPLAINT [None]
